FAERS Safety Report 4467911-2 (Version None)
Quarter: 2004Q3

REPORT INFORMATION
  Report Type: 
  Country: None (occurrence: None)
  Receive Date: 20040928
  Receipt Date: 20040920
  Transmission Date: 20050211
  Serious: Yes (Hospitalization)
  Sender: FDA-Public Use
  Company Number: 2004-01683

PATIENT
  Sex: Female

DRUGS (1)
  1. IMMUCYST (BCG - IT (CONNAUGHT) ), AVENTIS PASTEUR LTD., LOT NOT REP, M [Suspect]
     Indication: BLADDER CANCER
     Dosage: I. VES., BLADDER
     Route: 043
     Dates: start: 20040301

REACTIONS (9)
  - ASTHENIA [None]
  - BLOOD CREATININE INCREASED [None]
  - BOVINE TUBERCULOSIS [None]
  - BRONCHITIS [None]
  - CHILLS [None]
  - FEELING ABNORMAL [None]
  - INTERSTITIAL LUNG DISEASE [None]
  - PAIN [None]
  - PYREXIA [None]
